FAERS Safety Report 6442885-3 (Version None)
Quarter: 2009Q4

REPORT INFORMATION
  Report Type: 
  Country: None (occurrence: None)
  Receive Date: 20091117
  Receipt Date: 20091104
  Transmission Date: 20100525
  Serious: Yes (Death, Life-Threatening, Hospitalization)
  Sender: FDA-Public Use
  Company Number: PT-BRISTOL-MYERS SQUIBB COMPANY-14856744

PATIENT
  Age: 61 Year
  Sex: Female
  Weight: 100 kg

DRUGS (3)
  1. RISIDON [Suspect]
     Indication: DIABETES MELLITUS
     Dosage: RISIDON 850 MG,FILM COATED TABLET FORMULATION: TABS
     Route: 048
     Dates: end: 20091003
  2. PANTOPRAZOLE [Concomitant]
     Route: 048
  3. AMIODARONE HCL [Concomitant]
     Route: 048

REACTIONS (6)
  - LACTIC ACIDOSIS [None]
  - MALAISE [None]
  - MULTI-ORGAN FAILURE [None]
  - RENAL FAILURE ACUTE [None]
  - RESPIRATORY FAILURE [None]
  - SHOCK [None]
